FAERS Safety Report 9868216 (Version 2)
Quarter: 2014Q1

REPORT INFORMATION
  Report Type: Spontaneous
  Country: US (occurrence: US)
  Receive Date: 20140204
  Receipt Date: 20140321
  Transmission Date: 20141002
  Serious: Yes (Hospitalization)
  Sender: FDA-Public Use
  Company Number: PHEH2014US002226

PATIENT
  Sex: Male

DRUGS (2)
  1. CLOZARIL [Suspect]
     Dosage: 150 MG, BID
  2. CLOZARIL [Suspect]
     Dosage: 350 MG, AT BED TIME

REACTIONS (1)
  - Temporomandibular joint syndrome [Unknown]
